FAERS Safety Report 17245620 (Version 1)
Quarter: 2020Q3

REPORT INFORMATION
  Report Type: Spontaneous
  Country: IR (occurrence: IR)
  Receive Date: 20200108
  Receipt Date: 20200108
  Transmission Date: 20201104
  Serious: No
  Sender: FDA-Public Use
  Company Number: IR-LUPIN PHARMACEUTICALS INC.-2018-09200

PATIENT
  Age: 33 Year
  Sex: Male

DRUGS (3)
  1. TRAMADOL. [Suspect]
     Active Substance: TRAMADOL
     Indication: REHABILITATION THERAPY
     Dosage: UNK
     Route: 065
  2. OPIUM. [Suspect]
     Active Substance: OPIUM
     Indication: REHABILITATION THERAPY
     Dosage: UNK
     Route: 065
  3. METHADONE [Suspect]
     Active Substance: METHADONE HYDROCHLORIDE
     Indication: REHABILITATION THERAPY
     Dosage: UNK
     Route: 065

REACTIONS (1)
  - Weight decreased [Unknown]
